FAERS Safety Report 8844057 (Version 3)
Quarter: 2012Q4

REPORT INFORMATION
  Report Type: 
  Country: US (occurrence: US)
  Receive Date: 20121016
  Receipt Date: 20121214
  Transmission Date: 20130627
  Serious: Yes (Death, Hospitalization, Other)
  Sender: FDA-Public Use
  Company Number: US-PFIZER INC-2012252131

PATIENT
  Age: 53 Year
  Sex: Male

DRUGS (2)
  1. REVATIO [Suspect]
     Indication: PULMONARY ARTERIAL HYPERTENSION
     Dosage: 40 mg, 3x/day
  2. REVATIO [Suspect]
     Dosage: 20 mg, UNK

REACTIONS (3)
  - Haemorrhage [Fatal]
  - Thrombosis [Unknown]
  - Off label use [Unknown]
